FAERS Safety Report 7023574-3 (Version None)
Quarter: 2010Q3

REPORT INFORMATION
  Report Type: 
  Country: None (occurrence: None)
  Receive Date: 20100930
  Receipt Date: 20100917
  Transmission Date: 20110219
  Serious: Yes (Other)
  Sender: FDA-Public Use
  Company Number: US-MYLANLABS-2010S1017623

PATIENT
  Age: 60 Year
  Sex: Male

DRUGS (13)
  1. PRAMIPEXOLE [Suspect]
     Indication: PARKINSON'S DISEASE
     Route: 065
     Dates: start: 20010101
  2. PRAMIPEXOLE [Suspect]
     Route: 065
     Dates: start: 20010101
  3. PRAMIPEXOLE [Suspect]
     Dosage: PLUS 1MG AT BEDTIME
     Route: 065
     Dates: start: 20010101
  4. PRAMIPEXOLE [Suspect]
     Dosage: PLUS 1.5MG AT BEDTIME
     Route: 065
     Dates: start: 20010101
  5. SELEGILINE [Suspect]
     Indication: PARKINSON'S DISEASE
     Route: 065
     Dates: start: 20020101, end: 20070801
  6. CARBIDOPA AND LEVODOPA [Suspect]
     Indication: PARKINSON'S DISEASE
     Dosage: 100MG LEVODOPA; 25MG CARBIDOPA
     Route: 065
     Dates: start: 20040101
  7. CARBIDOPA AND LEVODOPA [Suspect]
     Dosage: 100MG LEVODOPA; 25MG CARBIDOPA
     Route: 065
     Dates: start: 20040101
  8. CARBIDOPA AND LEVODOPA [Suspect]
     Dosage: 100MG LEVODOPA; 25MG CARBIDOPA
     Route: 065
     Dates: start: 20060101
  9. CARBIDOPA AND LEVODOPA [Suspect]
     Dosage: 100MG LEVODOPA; 25MG CARBIDOPA
     Route: 065
     Dates: start: 20060101
  10. ENTACAPONE [Suspect]
     Indication: PARKINSON'S DISEASE
     Route: 065
     Dates: start: 20060101
  11. ENTACAPONE [Suspect]
     Route: 065
     Dates: start: 20060101
  12. AMANTADINE [Suspect]
     Indication: PARKINSON'S DISEASE
     Route: 065
     Dates: start: 20070901
  13. CLONAZEPAM [Concomitant]
     Dosage: AT BEDTIME
     Route: 065

REACTIONS (1)
  - HALLUCINATION [None]
